FAERS Safety Report 22259612 (Version 2)
Quarter: 2023Q2

REPORT INFORMATION
  Report Type: Spontaneous
  Country: US (occurrence: US)
  Receive Date: 20230427
  Receipt Date: 20230503
  Transmission Date: 20230722
  Serious: No
  Sender: FDA-Public Use
  Company Number: US-002147023-NVSC2023US091617

PATIENT
  Sex: Male

DRUGS (1)
  1. LOSARTAN [Suspect]
     Active Substance: LOSARTAN
     Indication: Product used for unknown indication
     Dosage: UNK
     Route: 065
     Dates: end: 20230405

REACTIONS (12)
  - Dizziness [Not Recovered/Not Resolved]
  - Tendon pain [Unknown]
  - Fluid retention [Unknown]
  - Alopecia [Unknown]
  - Rash [Unknown]
  - Somnolence [Recovered/Resolved]
  - Arthralgia [Not Recovered/Not Resolved]
  - Hot flush [Unknown]
  - Dehydration [Unknown]
  - Blood pressure decreased [Unknown]
  - Nail discolouration [Unknown]
  - Blood pressure orthostatic decreased [Unknown]
